FAERS Safety Report 19502875 (Version 3)
Quarter: 2022Q3

REPORT INFORMATION
  Report Type: Spontaneous
  Country: US (occurrence: US)
  Receive Date: 20210707
  Receipt Date: 20220916
  Transmission Date: 20221027
  Serious: Yes (Hospitalization, Other)
  Sender: FDA-Public Use
  Company Number: US-PFIZER INC-2021777029

PATIENT
  Age: 62 Year
  Sex: Male
  Weight: 91.61 kg

DRUGS (1)
  1. XELJANZ XR [Suspect]
     Active Substance: TOFACITINIB CITRATE
     Indication: Rheumatoid arthritis
     Dosage: 11 MG, 1X/DAY (TAKE ONE TABLET BY MOUTH ONCE DAILY)
     Route: 048
     Dates: start: 2020

REACTIONS (2)
  - Coronary artery disease [Unknown]
  - Condition aggravated [Recovering/Resolving]
